FAERS Safety Report 4338065-8 (Version None)
Quarter: 2004Q2

REPORT INFORMATION
  Report Type: 
  Country: None (occurrence: None)
  Receive Date: 20040407
  Receipt Date: 20040326
  Transmission Date: 20050107
  Serious: Yes (Hospitalization)
  Sender: FDA-Public Use
  Company Number: FR-JNJFOC-20040304170

PATIENT
  Age: 75 Year
  Sex: Female

DRUGS (6)
  1. ZALDIAR (TRAMADOL/APAP) UNSPECIFIED [Suspect]
     Indication: ARTHRALGIA
     Dosage: ORAL
     Route: 048
     Dates: start: 20040214, end: 20040221
  2. GLUCOPHAGE [Concomitant]
  3. ENALAPRIL MALEATE [Concomitant]
  4. LEXOMIL (BROMAZEPAM) [Concomitant]
  5. ASPEGIC 1000 [Concomitant]
  6. TENORMIN [Concomitant]

REACTIONS (7)
  - CEREBROVASCULAR DISORDER [None]
  - COGNITIVE DISORDER [None]
  - CONFUSIONAL STATE [None]
  - DISORIENTATION [None]
  - HYPERTENSION [None]
  - HYPONATRAEMIA [None]
  - URINARY TRACT INFECTION [None]
